FAERS Safety Report 14081085 (Version 1)
Quarter: 2017Q4

REPORT INFORMATION
  Report Type: Spontaneous
  Country: US (occurrence: US)
  Receive Date: 20171012
  Receipt Date: 20171012
  Transmission Date: 20180321
  Serious: No
  Sender: FDA-Public Use
  Company Number: US-NOVOPROD-564206

PATIENT
  Age: 53 Year
  Sex: Female

DRUGS (3)
  1. SAXENDA [Suspect]
     Active Substance: LIRAGLUTIDE
     Indication: BLOOD CHOLESTEROL INCREASED
     Dosage: 1.2 MG, UNK
     Route: 058
     Dates: start: 20170831, end: 20170906
  2. SAXENDA [Suspect]
     Active Substance: LIRAGLUTIDE
     Indication: WEIGHT DECREASED
     Dosage: 0.6 MG, UNK
     Route: 058
     Dates: start: 20170824, end: 20170830
  3. SAXENDA [Suspect]
     Active Substance: LIRAGLUTIDE
     Indication: HYPERTENSION
     Dosage: 1.8 MG, UNK
     Route: 058
     Dates: start: 20170907

REACTIONS (3)
  - Thirst [Not Recovered/Not Resolved]
  - Nausea [Recovered/Resolved]
  - Intentional underdose [Unknown]

NARRATIVE: CASE EVENT DATE: 20170824
